FAERS Safety Report 23495736 (Version 1)
Quarter: 2024Q1

REPORT INFORMATION
  Report Type: Report from Study
  Country: IL (occurrence: IL)
  Receive Date: 20240207
  Receipt Date: 20240207
  Transmission Date: 20240409
  Serious: Yes (Death, Hospitalization)
  Sender: FDA-Public Use
  Company Number: IL-SERVIER-S24000480

PATIENT
  Age: 54 Year
  Sex: Male

DRUGS (1)
  1. LONSURF [Suspect]
     Active Substance: TIPIRACIL HYDROCHLORIDE\TRIFLURIDINE
     Indication: Colon cancer metastatic
     Dosage: 75 MG, BID, ON DAY 1-5 AND 8-12 OF EACH 28-DAY CYCLE
     Route: 048
     Dates: start: 20231219

REACTIONS (7)
  - General physical health deterioration [Fatal]
  - Blood bilirubin increased [Fatal]
  - Abdominal pain [Unknown]
  - Yellow skin [Unknown]
  - Ocular icterus [Unknown]
  - Chromaturia [Unknown]
  - Blister [Not Recovered/Not Resolved]

NARRATIVE: CASE EVENT DATE: 20240114
